FAERS Safety Report 8495158-1 (Version None)
Quarter: 2012Q3

REPORT INFORMATION
  Report Type: 
  Country: None (occurrence: None)
  Receive Date: 20120709
  Receipt Date: 20120628
  Transmission Date: 20120928
  Serious: Yes (Other)
  Sender: FDA-Public Use
  Company Number: CA-ASTRAZENECA-2012SE43840

PATIENT
  Age: 69 Year
  Sex: Female

DRUGS (1)
  1. ARIMIDEX [Suspect]
     Indication: BREAST CANCER
     Route: 048
     Dates: start: 20120501, end: 20120617

REACTIONS (3)
  - PHLEBITIS [None]
  - TRANSIENT ISCHAEMIC ATTACK [None]
  - BREAST PAIN [None]
